FAERS Safety Report 24439765 (Version 1)
Quarter: 2024Q4

REPORT INFORMATION
  Report Type: Spontaneous
  Country: US (occurrence: US)
  Receive Date: 20241015
  Receipt Date: 20241015
  Transmission Date: 20250115
  Serious: No
  Sender: BIOMARIN
  Company Number: US-BIOMARINAP-US-2024-161109

PATIENT

DRUGS (1)
  1. KUVAN [Suspect]
     Active Substance: SAPROPTERIN DIHYDROCHLORIDE
     Indication: Product used for unknown indication
     Route: 065

REACTIONS (10)
  - Dyspnoea [Unknown]
  - Chest discomfort [Unknown]
  - Anxiety [Unknown]
  - Poor quality sleep [Unknown]
  - Upper-airway cough syndrome [Unknown]
  - Abdominal distension [Unknown]
  - Gastritis [Unknown]
  - Hypersensitivity [Unknown]
  - Headache [Unknown]
  - Nasal congestion [Unknown]
